FAERS Safety Report 4924967-8 (Version None)
Quarter: 2006Q1

REPORT INFORMATION
  Report Type: 
  Country: None (occurrence: None)
  Receive Date: 20060222
  Receipt Date: 20060206
  Transmission Date: 20060701
  Serious: Yes (Hospitalization)
  Sender: FDA-Public Use
  Company Number: BE-GDP-0512432

PATIENT
  Age: 39 Year
  Sex: Female

DRUGS (4)
  1. METROCREAM [Suspect]
     Indication: ROSACEA
     Dates: start: 20050630, end: 20050930
  2. ROZEX [Suspect]
     Indication: ROSACEA
     Dates: start: 20050630, end: 20050930
  3. PAPUSTIL [Concomitant]
  4. SENSIBIO D5 [Concomitant]

REACTIONS (7)
  - DERMATITIS CONTACT [None]
  - ECZEMA [None]
  - ERYSIPELAS [None]
  - ERYTHEMA [None]
  - FACE OEDEMA [None]
  - LABORATORY TEST ABNORMAL [None]
  - SKIN TEST POSITIVE [None]
